FAERS Safety Report 5730717-8 (Version None)
Quarter: 2008Q2

REPORT INFORMATION
  Report Type: 
  Country: None (occurrence: None)
  Receive Date: 20080507
  Receipt Date: 20080425
  Transmission Date: 20081010
  Serious: Yes (Hospitalization)
  Sender: FDA-Public Use
  Company Number: BE-BAXTER-2008BH002240

PATIENT
  Age: 43 Year
  Sex: Female

DRUGS (14)
  1. SUPRANE [Suspect]
     Indication: ANAESTHESIA
     Dosage: DOSE UNIT:UNKNOWN
     Route: 065
  2. PARACETAMOL [Suspect]
     Indication: ANALGESIA
     Dosage: DOSE UNIT:UNKNOWN
     Route: 065
     Dates: start: 20080213, end: 20080215
  3. DORMICUM /GFR/ [Concomitant]
     Indication: SURGERY
     Dates: start: 20080213, end: 20080213
  4. DIPRIVAN [Concomitant]
     Indication: SURGERY
     Dates: start: 20080213, end: 20080213
  5. ROCURONIUM BROMIDE [Concomitant]
     Indication: SURGERY
     Dates: start: 20080213, end: 20080213
  6. DEXAMETHASONE [Concomitant]
     Indication: SURGERY
     Dates: start: 20080213, end: 20080213
  7. CATAPRES [Concomitant]
     Indication: SURGERY
     Dates: start: 20080213, end: 20080213
  8. SUFENTA [Concomitant]
     Indication: SURGERY
     Dates: start: 20080213, end: 20080213
  9. PLASMALYTE 56 IN 5% DEXTROSE [Concomitant]
     Indication: SURGERY
     Dates: start: 20080213, end: 20080213
  10. TARADYL [Concomitant]
  11. DIPIDOLOR [Concomitant]
     Route: 030
  12. PERFUSALGAN [Concomitant]
     Dates: start: 20080216
  13. ENOXAPARIN SODIUM [Concomitant]
     Dates: start: 20080216
  14. DOMPERIDONE [Concomitant]
     Dates: start: 20080216

REACTIONS (11)
  - BRONCHOPNEUMONIA [None]
  - DIALYSIS [None]
  - DISSEMINATED INTRAVASCULAR COAGULATION [None]
  - HEPATIC ENCEPHALOPATHY [None]
  - HEPATIC STEATOSIS [None]
  - HEPATITIS FULMINANT [None]
  - LACTIC ACIDOSIS [None]
  - LIVER TRANSPLANT [None]
  - METABOLIC ACIDOSIS [None]
  - RENAL FAILURE [None]
  - SHOCK [None]
